FAERS Safety Report 15368456 (Version 5)
Quarter: 2018Q4

REPORT INFORMATION
  Report Type: Other
  Country: CA (occurrence: CA)
  Receive Date: 20180910
  Receipt Date: 20181206
  Transmission Date: 20190204
  Serious: Yes (Death, Hospitalization)
  Sender: FDA-Public Use
  Company Number: CA-HLSUS-2018-CA-001324

PATIENT
  Age: 65 Year
  Sex: Male
  Weight: 85 kg

DRUGS (3)
  1. EPIVAL [Concomitant]
     Active Substance: DIVALPROEX SODIUM
     Indication: SCHIZOPHRENIA
     Dosage: 500MG QAM, 1000MG QHS
     Route: 048
     Dates: start: 20180306, end: 20180830
  2. LITHIUM. [Concomitant]
     Active Substance: LITHIUM
     Indication: SCHIZOPHRENIA
     Dosage: 600MG
     Route: 048
     Dates: start: 20180717, end: 20180830
  3. CLOZARIL [Suspect]
     Active Substance: CLOZAPINE
     Indication: SCHIZOPHRENIA
     Dosage: 1000MG
     Route: 048
     Dates: start: 19941002, end: 20180906

REACTIONS (10)
  - Schizophrenia [Unknown]
  - Leukocytosis [Unknown]
  - Neutrophilia [Unknown]
  - Malaise [None]
  - Sepsis [Unknown]
  - Intestinal ischaemia [Unknown]
  - Treatment noncompliance [None]
  - Necrosis [Unknown]
  - Death [Fatal]
  - Ileus paralytic [Unknown]

NARRATIVE: CASE EVENT DATE: 20180905
